FAERS Safety Report 9262968 (Version 1)
Quarter: 2013Q2

REPORT INFORMATION
  Report Type: Spontaneous
  Country: IN (occurrence: None)
  Receive Date: 20130426
  Receipt Date: 20130426
  Transmission Date: 20140414
  Serious: Yes (Other)
  Sender: FDA-Public Use
  Company Number: FK201301287

PATIENT
  Age: 59 Year
  Sex: Male

DRUGS (3)
  1. CISPLATIN [Suspect]
     Indication: NON-SMALL CELL LUNG CANCER METASTATIC
  2. GEMCITABINE (MANUFACTURER UNKNOWN) (GEMCITABINE) (GEMCITABINE) [Suspect]
     Indication: NON-SMALL CELL LUNG CANCER METASTATIC
  3. DOCETAXEL (DOCETAXEL) [Concomitant]

REACTIONS (2)
  - Splenic infarction [None]
  - Renal infarct [None]
